FAERS Safety Report 8837900 (Version 1)
Quarter: 2012Q4

REPORT INFORMATION
  Report Type: 
  Country: US (occurrence: US)
  Receive Date: 20121012
  Receipt Date: 20121012
  Transmission Date: 20130627
  Serious: Yes (Other)
  Sender: FDA-Public Use
  Company Number: US-UCBSA-067923

PATIENT
  Age: 43 Year

DRUGS (1)
  1. LEVETIRACETAM [Suspect]
     Indication: STATUS EPILEPTICUS
     Dosage: UNKNOWN

REACTIONS (1)
  - Status epilepticus [Unknown]
